FAERS Safety Report 6011753-3 (Version None)
Quarter: 2008Q4

REPORT INFORMATION
  Report Type: 
  Country: None (occurrence: None)
  Receive Date: 20081218
  Receipt Date: 20080207
  Transmission Date: 20090506
  Serious: No
  Sender: FDA-Public Use
  Company Number: US-ABBOTT-08P-163-0437443-00

PATIENT
  Sex: Male
  Weight: 106.8 kg

DRUGS (1)
  1. MERIDIA [Suspect]
     Indication: WEIGHT DECREASED
     Route: 048
     Dates: start: 20060801, end: 20070801

REACTIONS (1)
  - INSOMNIA [None]
